FAERS Safety Report 9998295 (Version 2)
Quarter: 2016Q2

REPORT INFORMATION
  Report Type: Report from Study
  Country: US (occurrence: US)
  Receive Date: 20140312
  Receipt Date: 20160601
  Transmission Date: 20160815
  Serious: Yes (Hospitalization)
  Sender: FDA-Public Use
  Company Number: US-ROCHE-1359739

PATIENT
  Age: 67 Year
  Sex: Female

DRUGS (32)
  1. AVALIDE [Concomitant]
     Active Substance: HYDROCHLOROTHIAZIDE\IRBESARTAN
     Dosage: 150-12.5 MG TABLET
     Route: 048
  2. COREG [Concomitant]
     Active Substance: CARVEDILOL
  3. PATADAY [Concomitant]
     Active Substance: OLOPATADINE HYDROCHLORIDE
     Route: 065
  4. XOLAIR [Suspect]
     Active Substance: OMALIZUMAB
     Indication: ASTHMA
  5. COLACE [Concomitant]
     Active Substance: DOCUSATE SODIUM
     Route: 048
  6. VITAMIN D3 [Concomitant]
     Active Substance: CHOLECALCIFEROL
  7. AVELOX [Concomitant]
     Active Substance: MOXIFLOXACIN HYDROCHLORIDE
     Route: 065
  8. ZETIA [Concomitant]
     Active Substance: EZETIMIBE
  9. ALBUTEROL SULFATE. [Concomitant]
     Active Substance: ALBUTEROL SULFATE
     Dosage: 0.083% NEBU SOLUTION INHALE 1 VIA INHALE FOUR TIMES
     Route: 065
  10. AZOPT [Concomitant]
     Active Substance: BRINZOLAMIDE
     Dosage: 1 % DROP SUSPENSION SIG: APPLY 1 DROP OPHT TWICE A DAY OPHT.
     Route: 065
  11. CETIRIZINE [Concomitant]
     Active Substance: CETIRIZINE HYDROCHLORIDE
     Route: 048
  12. FLONASE (UNITED STATES) [Concomitant]
     Route: 065
  13. METHIMAZOLE. [Concomitant]
     Active Substance: METHIMAZOLE
  14. TRAMADOL. [Concomitant]
     Active Substance: TRAMADOL
  15. XOLAIR [Suspect]
     Active Substance: OMALIZUMAB
     Indication: SLEEP APNOEA SYNDROME
  16. OMEPRAZOLE. [Concomitant]
     Active Substance: OMEPRAZOLE
     Route: 048
  17. ZYFLO CR [Concomitant]
     Active Substance: ZILEUTON
     Route: 048
  18. XOLAIR [Suspect]
     Active Substance: OMALIZUMAB
     Indication: RHINITIS ALLERGIC
     Route: 058
     Dates: start: 200701
  19. METFORMIN [Concomitant]
     Active Substance: METFORMIN HYDROCHLORIDE
     Route: 048
  20. COZAAR [Concomitant]
     Active Substance: LOSARTAN POTASSIUM
  21. LASIX [Concomitant]
     Active Substance: FUROSEMIDE
     Route: 048
  22. LOTREL (UNITED STATES) [Concomitant]
     Dosage: 5-10 MG
     Route: 048
  23. MIRALAX [Concomitant]
     Active Substance: POLYETHYLENE GLYCOL 3350
  24. NASONEX [Concomitant]
     Active Substance: MOMETASONE FUROATE
  25. OXYBUTYNIN CHLORIDE. [Concomitant]
     Active Substance: OXYBUTYNIN CHLORIDE
  26. LIPITOR [Concomitant]
     Active Substance: ATORVASTATIN CALCIUM
     Route: 048
  27. SPIRIVA [Concomitant]
     Active Substance: TIOTROPIUM BROMIDE MONOHYDRATE
  28. XOLAIR [Suspect]
     Active Substance: OMALIZUMAB
     Indication: OBESITY
  29. FORADIL [Concomitant]
     Active Substance: FORMOTEROL FUMARATE
     Dosage: 12 MCG CAPSULE WITH INHALATION DEVICE
     Route: 065
  30. ADVAIR HFA [Concomitant]
     Active Substance: FLUTICASONE PROPIONATE\SALMETEROL XINAFOATE
     Dosage: 500/50
     Route: 065
  31. ZITHROMAX [Concomitant]
     Active Substance: AZITHROMYCIN DIHYDRATE
     Route: 048
  32. SINGULAIR [Concomitant]
     Active Substance: MONTELUKAST SODIUM

REACTIONS (2)
  - Costochondritis [Unknown]
  - Renal failure [Unknown]

NARRATIVE: CASE EVENT DATE: 201308
